FAERS Safety Report 4478634-8 (Version None)
Quarter: 2004Q4

REPORT INFORMATION
  Report Type: 
  Country: None (occurrence: None)
  Receive Date: 20040923
  Receipt Date: 20040610
  Transmission Date: 20050328
  Serious: No
  Sender: FDA-Public Use
  Company Number: 206680

PATIENT
  Age: 67 Year
  Sex: Male
  Weight: 86 kg

DRUGS (6)
  1. AVASTIN [Suspect]
     Indication: COLORECTAL CANCER METASTATIC
     Dosage: 430 MG, Q2W, INTRAVENOUS
     Route: 042
     Dates: start: 20040322, end: 20040518
  2. AVASTIN [Suspect]
     Indication: COLORECTAL CANCER METASTATIC
     Dosage: 430 MG, Q2W, INTRAVENOUS
     Route: 042
     Dates: start: 20040609
  3. FLUOROURACIL [Concomitant]
  4. LEUCOVORIN (LEUCOVORIN CALCIUM) [Concomitant]
  5. ERBITUX (CETUXIMAB) [Concomitant]
  6. ANZEMET [Concomitant]

REACTIONS (1)
  - HAEMATURIA [None]
